FAERS Safety Report 11948368 (Version 1)
Quarter: 2016Q1

REPORT INFORMATION
  Report Type: Spontaneous
  Country: US (occurrence: None)
  Receive Date: 20160121
  Receipt Date: 20160121
  Transmission Date: 20160526
  Serious: Yes (Life-Threatening)
  Sender: FDA-Public Use
  Company Number: None

PATIENT
  Age: 57 Year
  Sex: Male
  Weight: 101.8 kg

DRUGS (1)
  1. VANCOMYCIN [Suspect]
     Active Substance: VANCOMYCIN
     Route: 042
     Dates: start: 20150927, end: 20150927

REACTIONS (9)
  - Cardiac arrest [None]
  - Pruritus [None]
  - Infusion related reaction [None]
  - Flushing [None]
  - Urticaria [None]
  - Hypotension [None]
  - Anaphylactic reaction [None]
  - Dyspnoea [None]
  - Respiratory depression [None]

NARRATIVE: CASE EVENT DATE: 20150927
